FAERS Safety Report 6770207-7 (Version None)
Quarter: 2010Q2

REPORT INFORMATION
  Report Type: 
  Country: None (occurrence: None)
  Receive Date: 20100615
  Receipt Date: 20100603
  Transmission Date: 20101027
  Serious: Yes (Other)
  Sender: FDA-Public Use
  Company Number: US-WYE-H15486910

PATIENT
  Age: 51 Year
  Sex: Female
  Weight: 60.84 kg

DRUGS (3)
  1. PRISTIQ [Suspect]
     Indication: ANXIETY
     Route: 048
     Dates: start: 20091101, end: 20091216
  2. PRISTIQ [Suspect]
     Indication: DEPRESSION
  3. PRISTIQ [Suspect]
     Indication: FIBROMYALGIA

REACTIONS (1)
  - HERPES ZOSTER [None]
